FAERS Safety Report 6231405-4 (Version None)
Quarter: 2009Q2

REPORT INFORMATION
  Report Type: 
  Country: None (occurrence: None)
  Receive Date: 20090616
  Receipt Date: 20090605
  Transmission Date: 20091009
  Serious: Yes (Hospitalization)
  Sender: FDA-Public Use
  Company Number: US-WYE-H09642609

PATIENT
  Age: 57 Year
  Sex: Male

DRUGS (9)
  1. TORISEL [Suspect]
     Indication: MULTIPLE MYELOMA
     Route: 042
     Dates: start: 20090420, end: 20090601
  2. ATIVAN [Concomitant]
  3. BACTRIM [Concomitant]
  4. VALTREX [Concomitant]
  5. LEVAQUIN [Concomitant]
  6. OXYCONTIN [Concomitant]
  7. PERIDEX [Concomitant]
  8. BORTEZOMIB [Suspect]
     Indication: MULTIPLE MYELOMA
     Route: 065
     Dates: start: 20090420, end: 20090601
  9. DIFLUCAN [Concomitant]

REACTIONS (2)
  - DIARRHOEA [None]
  - GASTROINTESTINAL HAEMORRHAGE [None]
